FAERS Safety Report 6107428-2 (Version None)
Quarter: 2009Q1

REPORT INFORMATION
  Report Type: 
  Country: None (occurrence: None)
  Receive Date: 20090309
  Receipt Date: 20090225
  Transmission Date: 20090719
  Serious: Yes (Hospitalization)
  Sender: FDA-Public Use
  Company Number: US-PFIZER INC-2009171543

PATIENT
  Sex: Female
  Weight: 80.6 kg

DRUGS (14)
  1. SUNITINIB MALATE [Suspect]
     Indication: BREAST CANCER
     Dosage: 37.5 MG, 1X/DAY
     Route: 048
     Dates: start: 20090205, end: 20090215
  2. AMBIEN [Concomitant]
     Dosage: UNK
     Route: 048
     Dates: start: 20080501
  3. ASPIRIN [Concomitant]
     Dosage: UNK
     Route: 048
     Dates: start: 20060630
  4. ATENOLOL [Concomitant]
     Dosage: UNK
     Route: 048
     Dates: start: 20060803
  5. BETIMOL [Concomitant]
     Dosage: UNK
     Route: 047
     Dates: start: 20081030
  6. HYDROCHLOROTHIAZIDE [Concomitant]
     Dosage: UNK
     Route: 048
     Dates: start: 20060630
  7. LISINOPRIL [Concomitant]
     Dosage: UNK
     Route: 048
     Dates: start: 20060630
  8. LORAZEPAM [Concomitant]
     Dosage: UNK
     Route: 048
     Dates: start: 20061026
  9. MIRALAX [Concomitant]
     Dosage: UNK
     Route: 048
     Dates: start: 20080429
  10. POTASSIUM CHLORIDE [Concomitant]
     Dosage: UNK
     Route: 048
     Dates: start: 20071127
  11. QUININE SULFATE [Concomitant]
     Dosage: UNK
     Route: 048
     Dates: start: 20081224
  12. SIMVASTATIN [Concomitant]
     Dosage: UNK
     Route: 048
     Dates: start: 20070508
  13. TYLENOL [Concomitant]
     Dosage: UNK
     Route: 048
     Dates: start: 20060803
  14. XALATAN [Concomitant]
     Dosage: UNK
     Route: 047
     Dates: start: 20061030

REACTIONS (3)
  - APHASIA [None]
  - BLOOD PRESSURE INCREASED [None]
  - CONFUSIONAL STATE [None]
